FAERS Safety Report 5289079-5 (Version None)
Quarter: 2007Q1

REPORT INFORMATION
  Report Type: 
  Country: None (occurrence: None)
  Receive Date: 20070117
  Receipt Date: 20060606
  Transmission Date: 20070707
  Serious: Yes (Hospitalization)
  Sender: FDA-Public Use
  Company Number: 2006-BP-02878BRO

PATIENT
  Age: 54 Year
  Sex: Female

DRUGS (1)
  1. LITHIUM CARBONATE [Suspect]
     Dosage: 300 MG QHS (300 MG), PO
     Route: 048

REACTIONS (1)
  - THERAPEUTIC AGENT TOXICITY [None]
